FAERS Safety Report 4282472-9 (Version None)
Quarter: 2004Q1

REPORT INFORMATION
  Report Type: 
  Country: None (occurrence: None)
  Receive Date: 20040129
  Receipt Date: 20040116
  Transmission Date: 20041129
  Serious: Yes (Death)
  Sender: FDA-Public Use
  Company Number: 2004003212

PATIENT
  Age: 37 Year
  Sex: Female

DRUGS (5)
  1. HYDROXYZINE HYDROCHLORIDE (TABLET) [Suspect]
     Indication: ILL-DEFINED DISORDER
  2. FENTANYL [Suspect]
     Indication: ILL-DEFINED DISORDER
  3. DIAZEPAM [Suspect]
     Indication: ILL-DEFINED DISORDER
  4. PAROXETINE [Suspect]
     Indication: ILL-DEFINED DISORDER
  5. DEXTROPROPOXYPHENE [Suspect]
     Indication: ILL-DEFINED DISORDER

REACTIONS (3)
  - COMPLETED SUICIDE [None]
  - INTENTIONAL OVERDOSE [None]
  - MULTIPLE DRUG OVERDOSE [None]
